FAERS Safety Report 7313835-2 (Version None)
Quarter: 2011Q1

REPORT INFORMATION
  Report Type: 
  Country: None (occurrence: None)
  Receive Date: 20110216
  Receipt Date: 20110216
  Transmission Date: 20110831
  Serious: Yes (Other)
  Sender: FDA-Public Use
  Company Number: None

PATIENT
  Age: 75 Year
  Sex: Female
  Weight: 77.5651 kg

DRUGS (2)
  1. LANSOPRAZOLE 30MG TAKEDA [Suspect]
     Indication: GASTROOESOPHAGEAL REFLUX DISEASE
     Dosage: 30 MG ONCE DAILY PO
     Route: 048
     Dates: start: 20050818, end: 20051229
  2. LANSOPRAZOLE 30MG TAKEDA [Suspect]
     Indication: BARRETT'S OESOPHAGUS
     Dosage: 30 MG ONCE DAILY PO
     Route: 048
     Dates: start: 20050818, end: 20051229

REACTIONS (1)
  - GASTROOESOPHAGEAL REFLUX DISEASE [None]
